FAERS Safety Report 5836442-7 (Version None)
Quarter: 2008Q3

REPORT INFORMATION
  Report Type: 
  Country: None (occurrence: None)
  Receive Date: 20080807
  Receipt Date: 20080729
  Transmission Date: 20090109
  Serious: Yes (Other)
  Sender: FDA-Public Use
  Company Number: PHHY2008DE16143

PATIENT
  Sex: Female
  Weight: 65 kg

DRUGS (1)
  1. ZOLEDRONIC ACID [Suspect]
     Indication: OSTEOPOROSIS
     Dosage: 5 MG, ONCE/SINGLE
     Route: 042

REACTIONS (5)
  - ASTHENIA [None]
  - HEADACHE [None]
  - MYALGIA [None]
  - PHOTOSENSITIVITY REACTION [None]
  - RETINITIS [None]
